FAERS Safety Report 5927162-9 (Version None)
Quarter: 2008Q4

REPORT INFORMATION
  Report Type: 
  Country: None (occurrence: None)
  Receive Date: 20081022
  Receipt Date: 20081014
  Transmission Date: 20090506
  Serious: Yes (Other)
  Sender: FDA-Public Use
  Company Number: US-AMGEN-QUU313339

PATIENT
  Sex: Female

DRUGS (5)
  1. ENBREL [Suspect]
     Indication: PSORIASIS
     Route: 058
     Dates: start: 20080101, end: 20080527
  2. ENBREL [Suspect]
     Indication: PSORIATIC ARTHROPATHY
  3. DOVONEX [Concomitant]
     Route: 061
  4. CALCIPOTRIENE [Concomitant]
     Route: 061
  5. BETAMETHASONE DIPROPIONATE [Concomitant]
     Route: 061

REACTIONS (1)
  - ABORTION SPONTANEOUS [None]
